FAERS Safety Report 8315416-0 (Version None)
Quarter: 2012Q2

REPORT INFORMATION
  Report Type: 
  Country: None (occurrence: None)
  Receive Date: 20120426
  Receipt Date: 20120417
  Transmission Date: 20120825
  Serious: Yes (Hospitalization, Other)
  Sender: FDA-Public Use
  Company Number: US-ACTELION-A-US2010-33368

PATIENT

DRUGS (3)
  1. COUMADIN [Concomitant]
  2. TRACLEER [Suspect]
     Indication: PULMONARY ARTERIAL HYPERTENSION
     Route: 048
     Dates: start: 20090710
  3. SILDENAFIL [Concomitant]

REACTIONS (4)
  - ARTIFICIAL HEART DEVICE USER [None]
  - CARDIAC DISORDER [None]
  - DYSPNOEA [None]
  - INFECTION [None]
